FAERS Safety Report 5156725-6 (Version None)
Quarter: 2006Q4

REPORT INFORMATION
  Report Type: 
  Country: None (occurrence: None)
  Receive Date: 20061115
  Receipt Date: 20061031
  Transmission Date: 20070319
  Serious: Yes (Hospitalization)
  Sender: FDA-Public Use
  Company Number: REM_00267_2006

PATIENT
  Age: 62 Year
  Sex: Female
  Weight: 73.9 kg

DRUGS (7)
  1. TRE / PLACEBO [Suspect]
     Indication: PULMONARY HYPERTENSION
     Dosage: 3 PUFF (S) QID IH
     Route: 055
     Dates: start: 20051201, end: 20060222
  2. TREPROSTINIL [Suspect]
     Indication: PULMONARY HYPERTENSION
     Dosage: 3 PUFF (S) QID IH
     Route: 055
     Dates: start: 20060223
  3. BOSENTAN [Suspect]
     Indication: PULMONARY HYPERTENSION
     Dosage: 125 MG BID PO
     Route: 048
  4. FUROSEMIDE [Concomitant]
  5. METFORMIN [Concomitant]
  6. DIGOXIN [Concomitant]
  7. SODIUM DOCUSATE [Concomitant]

REACTIONS (5)
  - ATRIAL FIBRILLATION [None]
  - ATRIAL FLUTTER [None]
  - DIZZINESS [None]
  - SICK SINUS SYNDROME [None]
  - SINUS ARREST [None]
